FAERS Safety Report 14120783 (Version 1)
Quarter: 2017Q4

REPORT INFORMATION
  Report Type: Spontaneous
  Country: US (occurrence: US)
  Receive Date: 20171024
  Receipt Date: 20171024
  Transmission Date: 20180321
  Serious: Yes (Other)
  Sender: FDA-Public Use
  Company Number: US-JNJFOC-20170723756

PATIENT
  Age: 42 Year
  Sex: Female

DRUGS (2)
  1. LEVAQUIN [Suspect]
     Active Substance: LEVOFLOXACIN
     Indication: INFECTION
     Route: 065
     Dates: end: 2004
  2. LEVAQUIN [Suspect]
     Active Substance: LEVOFLOXACIN
     Indication: MUSCULOSKELETAL PAIN
     Route: 065
     Dates: end: 2004

REACTIONS (2)
  - Carpal tunnel syndrome [Unknown]
  - Arthralgia [Unknown]

NARRATIVE: CASE EVENT DATE: 20040309
